FAERS Safety Report 18158905 (Version 2)
Quarter: 2020Q3

REPORT INFORMATION
  Report Type: Spontaneous
  Country: US (occurrence: US)
  Receive Date: 20200818
  Receipt Date: 20200902
  Transmission Date: 20201103
  Serious: Yes (Other)
  Sender: FDA-Public Use
  Company Number: US-DECIPHERA PHARMACEUTICALS LLC-2020-US-000008

PATIENT
  Age: 81 Year
  Sex: Female

DRUGS (2)
  1. QINLOCK [Suspect]
     Active Substance: RIPRETINIB
     Indication: GASTROINTESTINAL STROMAL TUMOUR
     Dosage: 150 MILLIGRAM, QD
     Route: 048
     Dates: start: 20200604
  2. QINLOCK [Suspect]
     Active Substance: RIPRETINIB
     Indication: GASTRIC CANCER

REACTIONS (5)
  - Tremor [Unknown]
  - Diarrhoea [Unknown]
  - Urinary tract infection [Unknown]
  - Constipation [Unknown]
  - Disease progression [Unknown]

NARRATIVE: CASE EVENT DATE: 20200604
